FAERS Safety Report 9263296 (Version 1)
Quarter: 2013Q2

REPORT INFORMATION
  Report Type: Spontaneous
  Country: DE (occurrence: DE)
  Receive Date: 20130430
  Receipt Date: 20130430
  Transmission Date: 20140414
  Serious: Yes (Other)
  Sender: FDA-Public Use
  Company Number: DE-TEVA-399011GER

PATIENT
  Sex: Female

DRUGS (2)
  1. SALBUTAMOL-RATIOPHARM INHALATIONSL?SUNG [Suspect]
     Indication: ASTHMA
     Route: 055
     Dates: start: 201304
  2. PULMICORT [Concomitant]
     Indication: ASTHMA
     Route: 055
     Dates: start: 201304

REACTIONS (4)
  - Pneumonia [Recovering/Resolving]
  - Pyrexia [Recovering/Resolving]
  - Drug ineffective [Recovering/Resolving]
  - Medication error [Recovering/Resolving]
